FAERS Safety Report 8136685-6 (Version None)
Quarter: 2012Q1

REPORT INFORMATION
  Report Type: 
  Country: None (occurrence: None)
  Receive Date: 20120214
  Receipt Date: 20120131
  Transmission Date: 20120608
  Serious: Yes (Life-Threatening, Hospitalization)
  Sender: FDA-Public Use
  Company Number: NL-MEDIMMUNE-MEDI-0014848

PATIENT
  Sex: Female
  Weight: 4.37 kg

DRUGS (2)
  1. SYNAGIS [Suspect]
     Route: 030
     Dates: start: 20120131, end: 20120131
  2. SYNAGIS [Suspect]
     Indication: PREMATURE BABY
     Route: 030
     Dates: start: 20120104, end: 20120104

REACTIONS (3)
  - FEBRILE CONVULSION [None]
  - RESPIRATORY ARREST [None]
  - PYREXIA [None]
